FAERS Safety Report 8093280-5 (Version None)
Quarter: 2012Q1

REPORT INFORMATION
  Report Type: 
  Country: None (occurrence: None)
  Receive Date: 20120128
  Receipt Date: 20110920
  Transmission Date: 20120608
  Serious: No
  Sender: FDA-Public Use
  Company Number: US-ABBOTT-11P-163-0836034-00

PATIENT
  Age: 37 Year
  Sex: Female

DRUGS (22)
  1. PROTONIX [Concomitant]
     Indication: DYSPEPSIA
     Route: 048
     Dates: start: 20060101
  2. THYROID ACTIVATOR [Concomitant]
     Indication: HYPOTHYROIDISM
     Dosage: MORNING
     Dates: start: 20080101
  3. VITAMIN D [Concomitant]
     Indication: VITAMIN SUPPLEMENTATION
     Route: 048
  4. MUCINEX [Concomitant]
     Indication: SEASONAL ALLERGY
  5. NAPROXEN (ALEVE) [Concomitant]
     Indication: PSORIATIC ARTHROPATHY
     Dosage: ONCE OR TWICE DAILY
  6. TYLENOL W/ CODEINE NO. 3 [Concomitant]
     Indication: HYPOTHYROIDISM
  7. NATURAL PREPARATIONS [Concomitant]
     Indication: ANXIETY
     Dosage: 17.4MCG/15MG, MORNINGS
     Route: 048
     Dates: start: 20080101
  8. LORTAB [Concomitant]
     Indication: MUSCULOSKELETAL STIFFNESS
  9. PROTONIX [Concomitant]
     Indication: PROPHYLAXIS
  10. LORTAB [Concomitant]
     Indication: MIGRAINE
     Dosage: EVERY EVENING
     Route: 048
  11. MUCINEX [Concomitant]
     Indication: NASAL CONGESTION
  12. HUMIRA [Suspect]
     Indication: PSORIASIS
     Dates: start: 20110610
  13. LEXAPRO [Concomitant]
     Indication: ANXIETY
     Route: 048
     Dates: start: 20080101
  14. T4 [Concomitant]
     Indication: HYPOTHYROIDISM
  15. JANUMET [Concomitant]
     Indication: DIABETES MELLITUS
     Dosage: 50/100 MG BID
     Route: 048
  16. FROVA [Concomitant]
     Indication: MIGRAINE
  17. VITAMIN E [Concomitant]
     Indication: VITAMIN SUPPLEMENTATION
     Dosage: THREE EVERY DAY
  18. ALLEGRA [Concomitant]
     Indication: SEASONAL ALLERGY
  19. AMBIEN [Concomitant]
     Indication: INSOMNIA
     Dosage: AT NIGHT
     Route: 048
     Dates: start: 20070101
  20. LORTAB [Concomitant]
     Indication: PAIN
  21. FISH OIL [Concomitant]
     Indication: BLOOD CHOLESTEROL
     Route: 048
     Dates: start: 20100101
  22. CELEXA [Concomitant]
     Indication: ANXIETY

REACTIONS (9)
  - SINUS HEADACHE [None]
  - HEADACHE [None]
  - PAINFUL RESPIRATION [None]
  - NASAL CONGESTION [None]
  - PSORIASIS [None]
  - PAIN [None]
  - SINUSITIS [None]
  - EAR PAIN [None]
  - PRURITUS [None]
